FAERS Safety Report 19219198 (Version 1)
Quarter: 2021Q2

REPORT INFORMATION
  Report Type: Spontaneous
  Country: SG (occurrence: SG)
  Receive Date: 20210506
  Receipt Date: 20210506
  Transmission Date: 20210717
  Serious: No
  Sender: FDA-Public Use
  Company Number: SG-LUPIN PHARMACEUTICALS INC.-2021-06003

PATIENT
  Age: 39 Year
  Sex: Male

DRUGS (5)
  1. HYDROCORTISONE. [Suspect]
     Active Substance: HYDROCORTISONE
     Indication: PITYRIASIS RUBRA PILARIS
     Dosage: UNK
     Route: 061
  2. KETOCONAZOLE. [Suspect]
     Active Substance: KETOCONAZOLE
     Indication: PITYRIASIS RUBRA PILARIS
     Dosage: UNK
     Route: 061
  3. MOMETASONE [Suspect]
     Active Substance: MOMETASONE
     Indication: PITYRIASIS RUBRA PILARIS
     Dosage: UNK
     Route: 061
  4. PIMECROLIMUS. [Suspect]
     Active Substance: PIMECROLIMUS
     Indication: PITYRIASIS RUBRA PILARIS
     Dosage: UNK
     Route: 061
  5. TACROLIMUS. [Suspect]
     Active Substance: TACROLIMUS
     Indication: PITYRIASIS RUBRA PILARIS
     Dosage: UNK
     Route: 061

REACTIONS (1)
  - Drug ineffective [Unknown]
